FAERS Safety Report 4979690-0 (Version None)
Quarter: 2006Q1

REPORT INFORMATION
  Report Type: 
  Country: None (occurrence: None)
  Receive Date: 20060227
  Receipt Date: 20050110
  Transmission Date: 20060701
  Serious: Yes (Disabling)
  Sender: FDA-Public Use
  Company Number: WAES  0501USA00830

PATIENT
  Age: 81 Year
  Sex: Male

DRUGS (3)
  1. ZOCOR [Suspect]
     Indication: BLOOD CHOLESTEROL INCREASED
     Dosage: 10 MG DAILY PO
     Route: 048
     Dates: start: 20041010
  2. FLOMAX [Concomitant]
  3. TERAZOSIN HYDROCHLORIDE [Concomitant]

REACTIONS (1)
  - MYALGIA [None]
